FAERS Safety Report 4981900-0 (Version None)
Quarter: 2006Q2

REPORT INFORMATION
  Report Type: 
  Country: None (occurrence: None)
  Receive Date: 20060425
  Receipt Date: 20041029
  Transmission Date: 20061013
  Serious: Yes (Hospitalization, Disabling)
  Sender: FDA-Public Use
  Company Number: US-MERCK-0411USA00118

PATIENT
  Age: 42 Year
  Sex: Female
  Weight: 65 kg

DRUGS (2)
  1. VIOXX [Suspect]
     Indication: MONARTHRITIS
     Route: 048
     Dates: start: 20000211, end: 20030819
  2. COMBIVIR [Suspect]
     Route: 065

REACTIONS (8)
  - ARTERY DISSECTION [None]
  - CEREBELLAR INFARCTION [None]
  - COORDINATION ABNORMAL [None]
  - DYSMENORRHOEA [None]
  - DYSPAREUNIA [None]
  - ENDOMETRIOSIS [None]
  - PALPITATIONS [None]
  - PELVIC PAIN [None]
